FAERS Safety Report 6521162-6 (Version None)
Quarter: 2009Q4

REPORT INFORMATION
  Report Type: 
  Country: None (occurrence: None)
  Receive Date: 20091222
  Receipt Date: 20091216
  Transmission Date: 20100525
  Serious: Yes (Other)
  Sender: FDA-Public Use
  Company Number: 2009029714

PATIENT
  Age: 5 Year
  Sex: Male
  Weight: 24.9478 kg

DRUGS (4)
  1. PROVIGIL [Suspect]
     Indication: ATTENTION DEFICIT/HYPERACTIVITY DISORDER
     Dosage: 400 MG (200 MG, 2 IN 1 D), ORAL; 800 MG (200 MG, 3 TABS IN THE AM AND 1 TAB IN THE PM), ORAL
     Route: 048
     Dates: start: 20091101, end: 20091207
  2. PROVIGIL [Suspect]
     Indication: ATTENTION DEFICIT/HYPERACTIVITY DISORDER
     Dosage: 400 MG (200 MG, 2 IN 1 D), ORAL; 800 MG (200 MG, 3 TABS IN THE AM AND 1 TAB IN THE PM), ORAL
     Route: 048
     Dates: start: 20091208, end: 20091214
  3. CLONIDINE [Concomitant]
  4. STRATTERA [Concomitant]

REACTIONS (9)
  - ABNORMAL BEHAVIOUR [None]
  - ANGINA PECTORIS [None]
  - DECREASED APPETITE [None]
  - DRUG PRESCRIBING ERROR [None]
  - HEADACHE [None]
  - HEART RATE INCREASED [None]
  - INCORRECT DOSE ADMINISTERED [None]
  - RASH ERYTHEMATOUS [None]
  - RASH PRURITIC [None]
